FAERS Safety Report 19083060 (Version 1)
Quarter: 2021Q2

REPORT INFORMATION
  Report Type: Spontaneous
  Country: US (occurrence: US)
  Receive Date: 20210401
  Receipt Date: 20210401
  Transmission Date: 20210717
  Serious: Yes (Other)
  Sender: FDA-Public Use
  Company Number: US-CELGENEUS-USA-20210306979

PATIENT
  Age: 54 Year
  Sex: Female

DRUGS (6)
  1. REVLIMID [Suspect]
     Active Substance: LENALIDOMIDE
     Indication: OFF LABEL USE
  2. TACROLIMUS. [Concomitant]
     Active Substance: TACROLIMUS
     Indication: CHRONIC KIDNEY DISEASE
     Route: 065
  3. PREDNISONE. [Concomitant]
     Active Substance: PREDNISONE
     Indication: IMMUNOSUPPRESSION
     Route: 065
  4. R CHOP [Concomitant]
     Active Substance: CYCLOPHOSPHAMIDE\DOXORUBICIN\PREDNISONE\RITUXIMAB\VINCRISTINE
     Indication: PRODUCT USED FOR UNKNOWN INDICATION
     Route: 065
  5. REVLIMID [Suspect]
     Active Substance: LENALIDOMIDE
     Indication: DIFFUSE LARGE B-CELL LYMPHOMA
     Route: 048
  6. MYCOPHENOLATE MOFETIL. [Concomitant]
     Active Substance: MYCOPHENOLATE MOFETIL
     Indication: CHRONIC KIDNEY DISEASE
     Route: 065

REACTIONS (1)
  - Acute kidney injury [Recovered/Resolved]
